FAERS Safety Report 25452034 (Version 1)
Quarter: 2025Q2

REPORT INFORMATION
  Report Type: Spontaneous
  Country: US (occurrence: US)
  Receive Date: 20250618
  Receipt Date: 20250618
  Transmission Date: 20250716
  Serious: No
  Sender: SANOFI AVENTIS
  Company Number: US-SA-2025SA171758

PATIENT
  Age: 43 Year
  Sex: Female

DRUGS (6)
  1. DUPIXENT [Suspect]
     Active Substance: DUPILUMAB
     Indication: Dermatitis atopic
     Route: 058
  2. RINVOQ [Concomitant]
     Active Substance: UPADACITINIB
  3. HYDROCORTISONE [Concomitant]
     Active Substance: HYDROCORTISONE
  4. VITAMINS [Concomitant]
     Active Substance: VITAMINS
  5. FISH OIL [Concomitant]
     Active Substance: FISH OIL
  6. VITAMIN D3 [Concomitant]
     Active Substance: CHOLECALCIFEROL

REACTIONS (4)
  - Dermatitis atopic [Unknown]
  - Rash erythematous [Unknown]
  - Rash pruritic [Unknown]
  - Therapeutic response decreased [Unknown]
